FAERS Safety Report 6262914-X (Version None)
Quarter: 2009Q3

REPORT INFORMATION
  Report Type: 
  Country: None (occurrence: None)
  Receive Date: 20090708
  Receipt Date: 20090622
  Transmission Date: 20100115
  Serious: Yes (Death)
  Sender: FDA-Public Use
  Company Number: 2009BI019881

PATIENT
  Age: 43 Year

DRUGS (5)
  1. ZEVALIN [Suspect]
     Indication: NON-HODGKIN'S LYMPHOMA
  2. ZEVALIN [Suspect]
     Indication: STEM CELL TRANSPLANT
  3. CYCLOSPORINE [Concomitant]
  4. FLUDARABINE PHOSPHATE [Concomitant]
  5. PREV MEDS [Concomitant]

REACTIONS (3)
  - GENERAL PHYSICAL HEALTH DETERIORATION [None]
  - MALIGNANT NEOPLASM PROGRESSION [None]
  - NON-HODGKIN'S LYMPHOMA [None]
